FAERS Safety Report 9617484 (Version 1)
Quarter: 2013Q4

REPORT INFORMATION
  Report Type: Spontaneous
  Country: US (occurrence: None)
  Receive Date: 20131009
  Receipt Date: 20131009
  Transmission Date: 20140711
  Serious: Yes (Other)
  Sender: FDA-Public Use
  Company Number: 2013AP008367

PATIENT
  Sex: Female

DRUGS (6)
  1. GLIPIZIDE TABLET [Suspect]
     Indication: DIABETES MELLITUS
  2. VITAMIN D/00107901 [Concomitant]
  3. FOLATE [Concomitant]
  4. CLONAZEPAM [Concomitant]
  5. LITHIUM [Concomitant]
  6. DEPAKOTE [Concomitant]

REACTIONS (10)
  - Constipation [None]
  - Muscle spasms [None]
  - Tremor [None]
  - Abdominal pain [None]
  - Diarrhoea [None]
  - Blood glucose increased [None]
  - Cognitive disorder [None]
  - Tinnitus [None]
  - Dysphemia [None]
  - Sensation of blood flow [None]
